FAERS Safety Report 5699395-0 (Version None)
Quarter: 2008Q2

REPORT INFORMATION
  Report Type: 
  Country: None (occurrence: None)
  Receive Date: 20080407
  Receipt Date: 20080326
  Transmission Date: 20081010
  Serious: Yes (Death)
  Sender: FDA-Public Use
  Company Number: S08-USA-01234-01

PATIENT
  Age: 61 Year
  Sex: Female

DRUGS (3)
  1. LEXAPRO [Suspect]
     Dosage: 40 MG QD PO
     Route: 048
     Dates: start: 20060101, end: 20060701
  2. LEXAPRO [Suspect]
     Dosage: 10 MG QD PO
     Route: 048
  3. LEXAPRO [Suspect]
     Dosage: 20 MG QD PO
     Route: 048
     Dates: end: 20060101

REACTIONS (1)
  - OVERDOSE [None]
